FAERS Safety Report 7072543-6 (Version None)
Quarter: 2010Q4

REPORT INFORMATION
  Report Type: 
  Country: None (occurrence: None)
  Receive Date: 20101029
  Receipt Date: 20100209
  Transmission Date: 20110411
  Serious: No
  Sender: FDA-Public Use
  Company Number: A0843748A

PATIENT
  Age: 91 Year
  Sex: Female

DRUGS (11)
  1. ADVAIR DISKUS 100/50 [Suspect]
     Dosage: 1PUFF TWICE PER DAY
     Route: 055
     Dates: start: 20100206
  2. ALTACE [Concomitant]
  3. MUCINEX [Concomitant]
  4. CIPROFLOXACIN [Concomitant]
  5. BENZONATATE [Concomitant]
  6. SYNTHROID [Concomitant]
  7. CALCIUM [Concomitant]
  8. ASPIRIN [Concomitant]
  9. ZYRTEC [Concomitant]
  10. FLUTICASONE NASAL [Concomitant]
  11. AZITHROMYCIN [Concomitant]

REACTIONS (3)
  - ADVERSE EVENT [None]
  - COUGH [None]
  - DYSPNOEA [None]
